FAERS Safety Report 5386479-X (Version None)
Quarter: 2007Q3

REPORT INFORMATION
  Report Type: 
  Country: None (occurrence: None)
  Receive Date: 20070713
  Receipt Date: 20070705
  Transmission Date: 20080115
  Serious: Yes (Hospitalization)
  Sender: FDA-Public Use
  Company Number: PT-AVENTIS-200711045GDDC

PATIENT
  Age: 58 Year
  Sex: Female

DRUGS (11)
  1. DOCETAXEL [Suspect]
     Route: 042
     Dates: start: 20061222, end: 20061222
  2. BEVACIZUMAB [Suspect]
     Route: 042
     Dates: start: 20061222, end: 20061222
  3. BROTIZOLAM [Concomitant]
  4. GLUCOBAY [Concomitant]
     Dates: start: 20000615
  5. GLUCOVANCE                         /01503701/ [Concomitant]
     Dates: start: 20000615, end: 20070515
  6. HYDROCHLOROTHIAZIDE [Concomitant]
     Dates: start: 19870615, end: 20070215
  7. LISINOPRIL [Concomitant]
     Dates: start: 19870615, end: 20070215
  8. PREDNISOLONE SODIUM SUCCINATE INJ [Concomitant]
     Dates: start: 20061222, end: 20070415
  9. PANTOPRAZOLE SODIUM [Concomitant]
     Dates: start: 19920615
  10. UNKNOWN DRUG [Concomitant]
     Dates: start: 20070205, end: 20070315
  11. SODIUM PICOSULFATE [Concomitant]

REACTIONS (1)
  - ANAL FISSURE [None]
